FAERS Safety Report 4696810-6 (Version None)
Quarter: 2005Q2

REPORT INFORMATION
  Report Type: 
  Country: None (occurrence: None)
  Receive Date: 20050620
  Receipt Date: 20050610
  Transmission Date: 20051028
  Serious: Yes (Hospitalization, Other)
  Sender: FDA-Public Use
  Company Number: HQWYE467015JUN05

PATIENT
  Age: 54 Year
  Sex: Male

DRUGS (7)
  1. RAPAMUNE [Suspect]
     Indication: LIVER TRANSPLANT
     Dosage: 8 MG 1X PER 1 DAY ORAL
     Route: 048
     Dates: start: 20041221, end: 20050222
  2. CELLCEPT [Suspect]
     Indication: LIVER TRANSPLANT
     Dosage: 2 G 1X PER 1 DAY ORAL
     Route: 048
     Dates: start: 20041221
  3. OMEPRAZOLE MAGNESIUM (OMEPRAZOLE MAGNESIUM) [Suspect]
     Indication: PROPHYLAXIS
     Dosage: 40 MG 1X PER 1 DAY ORAL
     Route: 048
     Dates: start: 20041221, end: 20050222
  4. PROGRAF [Suspect]
     Indication: LIVER TRANSPLANT
     Dosage: ORAL
     Route: 048
     Dates: start: 20050222
  5. PREDNISONE [Concomitant]
  6. URSO FALK [Concomitant]
  7. COVERSUM (PERINDOPRIL) [Concomitant]

REACTIONS (2)
  - CHOLESTASIS [None]
  - PRURITUS [None]
